FAERS Safety Report 22141491 (Version 5)
Quarter: 2023Q2

REPORT INFORMATION
  Report Type: Report from Study
  Country: US (occurrence: US)
  Receive Date: 20230327
  Receipt Date: 20230612
  Transmission Date: 20230721
  Serious: No
  Sender: FDA-Public Use
  Company Number: US-002147023-NVSC2023US068429

PATIENT
  Age: 66 Year
  Sex: Male
  Weight: 103.4 kg

DRUGS (1)
  1. LEQVIO [Suspect]
     Active Substance: INCLISIRAN SODIUM
     Indication: Hypercholesterolaemia
     Dosage: UNK, (284 MG/1.5 ML, EVERY 6 MONTHS) (ROUTE: LEFT UPPER ARM)
     Route: 058
     Dates: start: 20230224

REACTIONS (4)
  - Back pain [Unknown]
  - Arthralgia [Unknown]
  - Pain in extremity [Recovered/Resolved]
  - Limb discomfort [Recovered/Resolved]

NARRATIVE: CASE EVENT DATE: 20230225
